FAERS Safety Report 9913273 (Version 7)
Quarter: 2014Q4

REPORT INFORMATION
  Report Type: Report from Study
  Country: AU (occurrence: AU)
  Receive Date: 20140220
  Receipt Date: 20141106
  Transmission Date: 20150529
  Serious: Yes (Other)
  Sender: FDA-Public Use
  Company Number: AU-BRISTOL-MYERS SQUIBB COMPANY-19934512

PATIENT
  Age: 63 Year
  Sex: Female

DRUGS (1)
  1. SPRYCEL [Suspect]
     Active Substance: DASATINIB
     Indication: CHRONIC MYELOID LEUKAEMIA
     Route: 048
     Dates: start: 20131001

REACTIONS (20)
  - Headache [Not Recovered/Not Resolved]
  - Skin cancer [Unknown]
  - Mass [Not Recovered/Not Resolved]
  - Cough [Unknown]
  - Ephelides [Unknown]
  - Folliculitis [Not Recovered/Not Resolved]
  - Chest pain [Not Recovered/Not Resolved]
  - Acne [Unknown]
  - Skin disorder [Unknown]
  - Photophobia [Not Recovered/Not Resolved]
  - Memory impairment [Recovered/Resolved]
  - Skin papilloma [Unknown]
  - Arthralgia [Unknown]
  - Vision blurred [Not Recovered/Not Resolved]
  - Sleep disorder [Not Recovered/Not Resolved]
  - Dry eye [Not Recovered/Not Resolved]
  - Sinus disorder [Not Recovered/Not Resolved]
  - Dyspnoea [Not Recovered/Not Resolved]
  - Upper-airway cough syndrome [Not Recovered/Not Resolved]
  - Visual acuity reduced [Not Recovered/Not Resolved]

NARRATIVE: CASE EVENT DATE: 20131001
